FAERS Safety Report 5514817-3 (Version None)
Quarter: 2007Q4

REPORT INFORMATION
  Report Type: 
  Country: None (occurrence: None)
  Receive Date: 20071113
  Receipt Date: 20071106
  Transmission Date: 20080405
  Serious: Yes (Hospitalization)
  Sender: FDA-Public Use
  Company Number: US-SHR-US-2007-024386

PATIENT
  Age: 55 Year
  Sex: Female
  Weight: 81.633 kg

DRUGS (15)
  1. BETASERON [Suspect]
     Indication: RELAPSING-REMITTING MULTIPLE SCLEROSIS
     Dosage: 8 MIU, EVERY 2D
     Route: 058
     Dates: start: 20011203, end: 20051231
  2. BETASERON [Suspect]
     Route: 058
     Dates: start: 20070812
  3. SOLU-MEDROL [Suspect]
     Indication: RELAPSING-REMITTING MULTIPLE SCLEROSIS
     Dosage: UNK, 1X/DAY
     Dates: start: 20070630
  4. NEURONTIN [Concomitant]
     Dosage: 300 MG, 3X/DAY
  5. CYMBALTA [Concomitant]
     Dosage: UNK, 1X/DAY
  6. PROVIGIL [Concomitant]
     Dosage: 200 MG, 1X/DAY
  7. ZANAFLEX [Concomitant]
     Dosage: 4 MG, 2X/DAY
  8. DIOVAN [Concomitant]
     Dosage: 80 MG, 1X/DAY
  9. NITROGLYCERIN [Concomitant]
     Indication: CHEST PAIN
     Dosage: UNK, AS REQ'D
  10. VASOTEC [Concomitant]
     Dosage: 10 MG, 1X/DAY
  11. ASPIRIN [Concomitant]
     Dosage: 325 MG, 1X/DAY
  12. LANTUS [Concomitant]
     Indication: DIABETES MELLITUS
     Dosage: 30 IU, BED T.
  13. PROTONIX [Concomitant]
     Dosage: 40 MG, 1X/DAY
  14. LIPITOR [Concomitant]
     Dosage: 80 MG/D, UNK
  15. LOPRESSOR [Concomitant]
     Dosage: 25 MG, 2X/DAY

REACTIONS (8)
  - BLOOD GLUCOSE INCREASED [None]
  - CORONARY ARTERY DISEASE [None]
  - CORONARY ARTERY OCCLUSION [None]
  - DEPRESSION [None]
  - DIABETES MELLITUS [None]
  - DYSLIPIDAEMIA [None]
  - MYOCARDIAL INFARCTION [None]
  - WHITE BLOOD CELL COUNT INCREASED [None]
